FAERS Safety Report 20612180 (Version 1)
Quarter: 2022Q1

REPORT INFORMATION
  Report Type: Spontaneous
  Country: US (occurrence: US)
  Receive Date: 20220318
  Receipt Date: 20220318
  Transmission Date: 20220424
  Serious: Yes (Death, Other)
  Sender: FDA-Public Use
  Company Number: US-ALVOGEN-2022-ALVOGEN-118951

PATIENT
  Age: 35 Year
  Sex: Male

DRUGS (2)
  1. AMPHETAMINE\DEXTROAMPHETAMINE [Suspect]
     Active Substance: AMPHETAMINE\DEXTROAMPHETAMINE
     Indication: Drug abuse
  2. CAFFEINE [Suspect]
     Active Substance: CAFFEINE
     Indication: Drug abuse

REACTIONS (1)
  - Drug abuse [Fatal]
